FAERS Safety Report 6027358-4 (Version None)
Quarter: 2009Q1

REPORT INFORMATION
  Report Type: 
  Country: None (occurrence: None)
  Receive Date: 20090105
  Receipt Date: 20081229
  Transmission Date: 20090719
  Serious: Yes (Hospitalization)
  Sender: FDA-Public Use
  Company Number: B0551972A

PATIENT
  Age: 10 Year
  Sex: Male

DRUGS (4)
  1. RELENZA [Suspect]
     Indication: INFLUENZA
     Dosage: 10MG TWICE PER DAY
     Route: 055
     Dates: start: 20081201
  2. ASVERIN [Concomitant]
     Route: 048
  3. POLARAMINE [Concomitant]
     Route: 048
  4. MUCODYNE [Concomitant]
     Route: 048

REACTIONS (1)
  - PSYCHIATRIC SYMPTOM [None]
